FAERS Safety Report 14846063 (Version 2)
Quarter: 2018Q2

REPORT INFORMATION
  Report Type: Report from Study
  Country: JP (occurrence: JP)
  Receive Date: 20180504
  Receipt Date: 20180504
  Transmission Date: 20180711
  Serious: Yes (Hospitalization)
  Sender: FDA-Public Use
  Company Number: JP-TEVA-2018-JP-887426

PATIENT
  Age: 78 Year
  Sex: Female

DRUGS (1)
  1. CEFTRIAXONE. [Suspect]
     Active Substance: CEFTRIAXONE
     Indication: BETA HAEMOLYTIC STREPTOCOCCAL INFECTION
     Dosage: BY DRIP FOR 20 DAYS
     Route: 042

REACTIONS (2)
  - Pseudocholelithiasis [Recovered/Resolved]
  - Cholangitis [Recovered/Resolved]
